FAERS Safety Report 4692038-4 (Version None)
Quarter: 2005Q2

REPORT INFORMATION
  Report Type: 
  Country: None (occurrence: None)
  Receive Date: 20050616
  Receipt Date: 20050616
  Transmission Date: 20051028
  Serious: Yes (Hospitalization)
  Sender: FDA-Public Use
  Company Number: None

PATIENT
  Age: 51 Year
  Sex: Male

DRUGS (2)
  1. LITHIUM CARBONATE [Suspect]
     Indication: BIPOLAR DISORDER
     Dosage: 300 MG   QHS     ORAL
     Route: 048
     Dates: start: 20030505, end: 20050603
  2. MILK OF MAGNESIA [Suspect]
     Indication: CONSTIPATION
     Dosage: 30 ML     BID PRN    ORAL
     Route: 048
     Dates: start: 20050509, end: 20050602

REACTIONS (6)
  - ARRHYTHMIA [None]
  - BRADYCARDIA [None]
  - DRUG TOXICITY [None]
  - HYPERMAGNESAEMIA [None]
  - HYPOTENSION [None]
  - NODAL RHYTHM [None]
